FAERS Safety Report 11271624 (Version 3)
Quarter: 2015Q4

REPORT INFORMATION
  Report Type: Report from Study
  Country: US (occurrence: US)
  Receive Date: 20150715
  Receipt Date: 20151208
  Transmission Date: 20160304
  Serious: No
  Sender: FDA-Public Use
  Company Number: PHEH2014US017990

PATIENT
  Age: 48 Year
  Sex: Female
  Weight: 80.27 kg

DRUGS (4)
  1. EXTAVIA [Suspect]
     Active Substance: INTERFERON BETA-1B
     Indication: MULTIPLE SCLEROSIS
     Dosage: WEEK(1TO2), 0.0625 MG, (0.25ML) QOD
     Route: 058
     Dates: start: 20140830
  2. EXTAVIA [Suspect]
     Active Substance: INTERFERON BETA-1B
     Dosage: WEEK (5TO6), 0.1875 MG. (0.75ML), QOD
     Route: 058
  3. EXTAVIA [Suspect]
     Active Substance: INTERFERON BETA-1B
     Dosage: WEEK (7 ABOVE), 0.25 MG, 1ML, QOD
     Route: 058
  4. EXTAVIA [Suspect]
     Active Substance: INTERFERON BETA-1B
     Dosage: WEEK(3TO4), 0.125 MG (0.5ML), QOD
     Route: 058

REACTIONS (7)
  - Rash pruritic [Unknown]
  - Injection site pain [Recovered/Resolved]
  - Injection site discolouration [Recovering/Resolving]
  - Injection site haemorrhage [Recovered/Resolved]
  - Injection site reaction [Not Recovered/Not Resolved]
  - Injection site bruising [Recovering/Resolving]
  - Fluid retention [Unknown]

NARRATIVE: CASE EVENT DATE: 20140901
